FAERS Safety Report 19458388 (Version 1)
Quarter: 2021Q2

REPORT INFORMATION
  Report Type: Spontaneous
  Country: FI (occurrence: FI)
  Receive Date: 20210624
  Receipt Date: 20210624
  Transmission Date: 20210717
  Serious: Yes (Other)
  Sender: FDA-Public Use
  Company Number: FI-MYLANLABS-2021M1036430

PATIENT
  Age: 76 Year
  Sex: Female

DRUGS (4)
  1. WARFARIN [Concomitant]
     Active Substance: WARFARIN
     Indication: DRUG THERAPY
     Dosage: UNK
  2. ALLOPURINOL. [Suspect]
     Active Substance: ALLOPURINOL
     Indication: GOUT
     Dosage: 100 MILLIGRAM, QD
  3. ALLOPURINOL. [Suspect]
     Active Substance: ALLOPURINOL
     Dosage: 100 MILLIGRAM, QD
  4. ALLOPURINOL. [Suspect]
     Active Substance: ALLOPURINOL
     Dosage: 200 MILLIGRAM, QD

REACTIONS (1)
  - Immune thrombocytopenia [Unknown]
